FAERS Safety Report 23505714 (Version 1)
Quarter: 2024Q1

REPORT INFORMATION
  Report Type: Spontaneous
  Country: US (occurrence: US)
  Receive Date: 20240209
  Receipt Date: 20240209
  Transmission Date: 20240409
  Serious: No
  Sender: FDA-Public Use
  Company Number: US-CIPLA LTD.-2023US07832

PATIENT

DRUGS (2)
  1. GABAPENTIN [Suspect]
     Active Substance: GABAPENTIN
     Indication: Neuralgia
     Dosage: 300 MILLIGRAM, TID
     Route: 065
     Dates: start: 202310
  2. GABAPENTIN [Suspect]
     Active Substance: GABAPENTIN
     Dosage: 600 MILLIGRAM, TID
     Route: 065
     Dates: start: 202310

REACTIONS (1)
  - Drug ineffective for unapproved indication [Unknown]

NARRATIVE: CASE EVENT DATE: 20231001
